FAERS Safety Report 9472829 (Version 1)
Quarter: 2013Q3

REPORT INFORMATION
  Report Type: Spontaneous
  Country: US (occurrence: None)
  Receive Date: 20130820
  Receipt Date: 20130820
  Transmission Date: 20140515
  Serious: Yes (Death)
  Sender: FDA-Public Use
  Company Number: 2013US00555

PATIENT
  Sex: 0

DRUGS (3)
  1. GEMCITABINE [Suspect]
     Indication: PANCREATIC CARCINOMA
     Dosage: (1G/M2 INFUSED OVER 30MINUTES) N DAYS 1, 8, AND 15 OF EACH CYCLE
  2. OXALIPLATIN [Suspect]
     Indication: PANCREATIC CARCINOMA
     Dosage: (85MG/M2 INFUSED OVER 90 MINUTES) WAS ADMINISTERED ON DAYS 1 AND 15
  3. RADIATION THERAPY [Concomitant]

REACTIONS (2)
  - Cardio-respiratory arrest [None]
  - Sudden cardiac death [None]
